FAERS Safety Report 5030076-2 (Version None)
Quarter: 2006Q2

REPORT INFORMATION
  Report Type: 
  Country: None (occurrence: None)
  Receive Date: 20060620
  Receipt Date: 20060612
  Transmission Date: 20061013
  Serious: Yes (Other)
  Sender: FDA-Public Use
  Company Number: US-GILEAD-2006-0009725

PATIENT
  Sex: Male

DRUGS (7)
  1. TRUVADA [Suspect]
     Indication: PROPHYLAXIS AGAINST HIV INFECTION
     Route: 048
     Dates: start: 20060111, end: 20060211
  2. KALETRA [Suspect]
     Indication: PROPHYLAXIS AGAINST HIV INFECTION
     Route: 048
     Dates: start: 20060111, end: 20060211
  3. SCULPTRA [Concomitant]
  4. METHOTREXATE [Concomitant]
  5. PLAQUENIL [Concomitant]
  6. PREDNISONE [Concomitant]
  7. ATENOLOL [Concomitant]

REACTIONS (6)
  - ALANINE AMINOTRANSFERASE INCREASED [None]
  - ASTHENIA [None]
  - DEHYDRATION [None]
  - DIARRHOEA [None]
  - MYALGIA [None]
  - VOMITING [None]
